FAERS Safety Report 18986023 (Version 1)
Quarter: 2021Q1

REPORT INFORMATION
  Report Type: Spontaneous
  Country: US (occurrence: US)
  Receive Date: 20210309
  Receipt Date: 20210309
  Transmission Date: 20210420
  Serious: Yes (Other)
  Sender: FDA-Public Use
  Company Number: US-ALXN-A202103016

PATIENT
  Age: 23 Year
  Sex: Female

DRUGS (1)
  1. SOLIRIS [Suspect]
     Active Substance: ECULIZUMAB
     Indication: MYASTHENIA GRAVIS
     Dosage: 1200 MG, Q2W
     Route: 042

REACTIONS (7)
  - Vaginal discharge [Unknown]
  - Hypertension [Unknown]
  - Streptococcal urinary tract infection [Unknown]
  - Pregnancy [Unknown]
  - Headache [Unknown]
  - Myasthenia gravis [Unknown]
  - Suprapubic pain [Unknown]

NARRATIVE: CASE EVENT DATE: 201902
